FAERS Safety Report 21436870 (Version 1)
Quarter: 2022Q4

REPORT INFORMATION
  Report Type: Spontaneous
  Country: TW (occurrence: TW)
  Receive Date: 20221010
  Receipt Date: 20221010
  Transmission Date: 20230112
  Serious: Yes (Other)
  Sender: FDA-Public Use
  Company Number: TW-009507513-2210TWN000545

PATIENT
  Age: 58 Year
  Sex: Male

DRUGS (20)
  1. ERTAPENEM SODIUM [Suspect]
     Active Substance: ERTAPENEM SODIUM
     Dosage: UNK
     Dates: start: 20200625, end: 20200627
  2. ERTAPENEM SODIUM [Suspect]
     Active Substance: ERTAPENEM SODIUM
     Dosage: UNK
     Dates: start: 20200629
  3. METRONIDAZOLE [Suspect]
     Active Substance: METRONIDAZOLE
     Dosage: UNK
     Dates: start: 20200619
  4. ANIDULAFUNGIN [Suspect]
     Active Substance: ANIDULAFUNGIN
     Dosage: UNK
     Dates: start: 20200712
  5. PIPERACILLIN AND TAZOBACTAM [Suspect]
     Active Substance: PIPERACILLIN SODIUM\TAZOBACTAM SODIUM
     Dosage: UNK
     Dates: start: 20200815
  6. MEROPENEM [Suspect]
     Active Substance: MEROPENEM
     Dosage: UNK
     Dates: start: 20200627, end: 20200709
  7. MEROPENEM [Suspect]
     Active Substance: MEROPENEM
     Dosage: UNK
     Dates: start: 20200712
  8. MEROPENEM [Suspect]
     Active Substance: MEROPENEM
     Dosage: UNK
     Dates: start: 20200717, end: 20200721
  9. MEROPENEM [Suspect]
     Active Substance: MEROPENEM
     Dosage: UNK
     Dates: start: 20200902
  10. CEFTRIAXONE [Suspect]
     Active Substance: CEFTRIAXONE
     Dosage: UNK
     Dates: start: 20200619
  11. CEFTRIAXONE [Suspect]
     Active Substance: CEFTRIAXONE
     Dosage: UNK
     Dates: start: 20200709, end: 20200712
  12. CEFTRIAXONE [Suspect]
     Active Substance: CEFTRIAXONE
     Dosage: UNK
     Dates: start: 20200721, end: 20200727
  13. LEVOFLOXACIN [Suspect]
     Active Substance: LEVOFLOXACIN
     Dosage: UNK
     Dates: start: 20200627, end: 20200629
  14. LEVOFLOXACIN [Suspect]
     Active Substance: LEVOFLOXACIN
     Dosage: UNK
     Dates: start: 20200717, end: 20200721
  15. LEVOFLOXACIN [Suspect]
     Active Substance: LEVOFLOXACIN
     Dosage: UNK
     Dates: start: 20200815
  16. TEICOPLANIN [Suspect]
     Active Substance: TEICOPLANIN
     Dosage: UNK
     Dates: start: 20200703, end: 20200707
  17. VANCOMYCIN [Suspect]
     Active Substance: VANCOMYCIN
     Dosage: UNK
     Dates: start: 20200712
  18. CIPROFLOXACIN [Suspect]
     Active Substance: CIPROFLOXACIN
     Dosage: UNK
     Dates: start: 20200815
  19. CIPROFLOXACIN [Suspect]
     Active Substance: CIPROFLOXACIN
     Dosage: UNK
     Dates: start: 20200822
  20. GENTAMICIN [Suspect]
     Active Substance: GENTAMICIN
     Dosage: UNK
     Dates: start: 20200822

REACTIONS (13)
  - Abdominal compartment syndrome [Unknown]
  - Haemodynamic instability [Recovered/Resolved]
  - Tracheostomy [Unknown]
  - Pneumonia pseudomonal [Recovered/Resolved]
  - Shock [Recovered/Resolved]
  - Device related infection [Recovered/Resolved]
  - Colonic fistula [Recovered/Resolved]
  - Large intestine perforation [Unknown]
  - Abdominal infection [Recovered/Resolved]
  - Urinary tract infection pseudomonal [Unknown]
  - Peritonitis [Unknown]
  - Escherichia test positive [Unknown]
  - Pseudomonas test positive [Unknown]

NARRATIVE: CASE EVENT DATE: 20200101
